FAERS Safety Report 18894453 (Version 1)
Quarter: 2021Q1

REPORT INFORMATION
  Report Type: Spontaneous
  Country: ES (occurrence: ES)
  Receive Date: 20210215
  Receipt Date: 20210215
  Transmission Date: 20210420
  Serious: Yes (Hospitalization, Other)
  Sender: FDA-Public Use
  Company Number: ES-MYLANLABS-13X-144-1162119-00

PATIENT
  Age: 53 Year
  Sex: Male

DRUGS (18)
  1. QUETIAPINE FUMARATE. [Suspect]
     Active Substance: QUETIAPINE FUMARATE
     Indication: SCHIZOAFFECTIVE DISORDER BIPOLAR TYPE
     Dosage: 400 MILLIGRAM, QD
     Route: 065
  2. RISPERIDONE. [Concomitant]
     Active Substance: RISPERIDONE
     Indication: SCHIZOAFFECTIVE DISORDER BIPOLAR TYPE
     Dosage: 6 MILLIGRAM, QD
  3. VALPROIC ACID. [Interacting]
     Active Substance: VALPROIC ACID
     Indication: LOGORRHOEA
  4. HALOPERIDOL. [Concomitant]
     Active Substance: HALOPERIDOL
     Indication: INSOMNIA
  5. VALPROIC ACID. [Interacting]
     Active Substance: VALPROIC ACID
     Indication: ABNORMAL BEHAVIOUR
  6. METFORMIN HYDROCHLORIDE. [Concomitant]
     Active Substance: METFORMIN HYDROCHLORIDE
     Indication: TYPE 2 DIABETES MELLITUS
     Dosage: UNK
     Route: 048
  7. MEROPENEM. [Interacting]
     Active Substance: MEROPENEM
     Indication: RESPIRATORY TRACT INFECTION
     Dosage: DAILY DOSE: 1 GRAM; EVERY 8 HOURS, INTRAVENOUS (NOT OTHERWISE SPECIFIED)
     Route: 042
  8. HALOPERIDOL. [Concomitant]
     Active Substance: HALOPERIDOL
     Indication: ABNORMAL BEHAVIOUR
     Dosage: UNK
  9. CLOZAPINE. [Concomitant]
     Active Substance: CLOZAPINE
     Indication: SCHIZOAFFECTIVE DISORDER BIPOLAR TYPE
     Dosage: 400 MILLIGRAM, QD
  10. DIAMICRON [Concomitant]
     Active Substance: GLICLAZIDE
     Indication: TYPE 2 DIABETES MELLITUS
     Dosage: UNK
     Route: 048
  11. VALPROIC ACID. [Suspect]
     Active Substance: VALPROIC ACID
     Indication: SCHIZOAFFECTIVE DISORDER BIPOLAR TYPE
     Dosage: 1000 MILLIGRAM, QD
  12. LITHIUM CARBONATE. [Concomitant]
     Active Substance: LITHIUM CARBONATE
     Indication: SCHIZOAFFECTIVE DISORDER BIPOLAR TYPE
     Dosage: 1200 MILLIGRAM, QD
  13. HALOPERIDOL. [Concomitant]
     Active Substance: HALOPERIDOL
     Indication: IRRITABILITY
  14. HALOPERIDOL. [Concomitant]
     Active Substance: HALOPERIDOL
     Indication: DISINHIBITION
  15. VALPROIC ACID. [Interacting]
     Active Substance: VALPROIC ACID
     Indication: THINKING ABNORMAL
  16. QUETIAPINE FUMARATE. [Suspect]
     Active Substance: QUETIAPINE FUMARATE
     Dosage: 800 MILLIGRAM
     Route: 065
  17. FLUPHENAZINE DECANOATE. [Concomitant]
     Active Substance: FLUPHENAZINE DECANOATE
     Indication: SCHIZOAFFECTIVE DISORDER BIPOLAR TYPE
     Dosage: 200 MILLIGRAM, MONTHLY
  18. HALOPERIDOL. [Concomitant]
     Active Substance: HALOPERIDOL
     Indication: PRESSURE OF SPEECH

REACTIONS (26)
  - Muscle rigidity [Unknown]
  - Seizure [Unknown]
  - Dysphoria [Unknown]
  - Sedation [Unknown]
  - Epilepsy [Unknown]
  - Mania [Unknown]
  - Dysphagia [Unknown]
  - Abnormal behaviour [Unknown]
  - Schizoaffective disorder bipolar type [Unknown]
  - Catatonia [Unknown]
  - Psychomotor hyperactivity [Unknown]
  - Delusion of grandeur [Unknown]
  - Overdose [Unknown]
  - Drug interaction [Unknown]
  - Hypertonia [Unknown]
  - Dysarthria [Unknown]
  - Insomnia [Unknown]
  - Irritability [Unknown]
  - Speech disorder [Unknown]
  - Disinhibition [Unknown]
  - Muscle twitching [Unknown]
  - Behaviour disorder [Unknown]
  - Anticonvulsant drug level decreased [Unknown]
  - Mutism [Unknown]
  - Logorrhoea [Unknown]
  - Thinking abnormal [Unknown]
